FAERS Safety Report 4616045-2 (Version None)
Quarter: 2005Q1

REPORT INFORMATION
  Report Type: 
  Country: None (occurrence: None)
  Receive Date: 20050321
  Receipt Date: 20050308
  Transmission Date: 20050727
  Serious: Yes (Hospitalization)
  Sender: FDA-Public Use
  Company Number: 2005-BP-03679RO

PATIENT
  Sex: Male

DRUGS (5)
  1. METHADONE (METHADONE) [Suspect]
     Indication: DRUG WITHDRAWAL MAINTENANCE THERAPY
     Dosage: 160 MG DAILY, PO
     Route: 048
  2. GRISEOFULVIN [Concomitant]
  3. DIAZEPAM [Concomitant]
  4. CODEINE W PARACETAMOL (GALENIC /PARACETAMOL/CODEINE/) [Concomitant]
  5. OXYCODONE (OXYCODONE) [Concomitant]

REACTIONS (18)
  - C-REACTIVE PROTEIN INCREASED [None]
  - CELLULITIS [None]
  - DERMATITIS EXFOLIATIVE GENERALISED [None]
  - EOSINOPHILIA [None]
  - HAEMOGLOBIN DECREASED [None]
  - HYPERKERATOSIS [None]
  - OEDEMA PERIPHERAL [None]
  - ONYCHOMYCOSIS [None]
  - PITYRIASIS RUBRA PILARIS [None]
  - PSORIASIS [None]
  - RASH ERYTHEMATOUS [None]
  - RASH MACULO-PAPULAR [None]
  - SARCOIDOSIS [None]
  - SKIN EXFOLIATION [None]
  - SYPHILIS [None]
  - THERAPEUTIC RESPONSE DECREASED [None]
  - VIRAL RASH [None]
  - XEROSIS [None]
